FAERS Safety Report 10671476 (Version 3)
Quarter: 2015Q1

REPORT INFORMATION
  Report Type: Report from Study
  Country: GB (occurrence: GB)
  Receive Date: 20141223
  Receipt Date: 20150109
  Transmission Date: 20150720
  Serious: No
  Sender: FDA-Public Use
  Company Number: GB-NOVOPROD-432805

PATIENT
  Age: 67 Year
  Sex: Male
  Weight: 92.7 kg

DRUGS (1)
  1. LIRAGLUTIDE FLEXPEN [Suspect]
     Active Substance: LIRAGLUTIDE
     Indication: TYPE 2 DIABETES MELLITUS
     Dosage: 1.8 MG, QD
     Route: 058
     Dates: start: 20140529

REACTIONS (1)
  - Blood calcitonin increased [Not Recovered/Not Resolved]

NARRATIVE: CASE EVENT DATE: 20141118
